FAERS Safety Report 10371288 (Version 1)
Quarter: 2014Q3

REPORT INFORMATION
  Report Type: Spontaneous
  Country: CN (occurrence: None)
  Receive Date: 20140806
  Receipt Date: 20140806
  Transmission Date: 20150326
  Serious: Yes (Other)
  Sender: FDA-Public Use
  Company Number: B1019942A

PATIENT
  Sex: Female

DRUGS (1)
  1. STRONTIUM CHOLRIDE [Suspect]
     Active Substance: STRONTIUM CHLORIDE
     Indication: DENTAL CLEANING
     Route: 004
     Dates: start: 20140714, end: 20140725

REACTIONS (4)
  - Metal poisoning [None]
  - Device failure [None]
  - Sputum discoloured [None]
  - Tooth discolouration [None]

NARRATIVE: CASE EVENT DATE: 2014
